FAERS Safety Report 17380719 (Version 2)
Quarter: 2020Q3

REPORT INFORMATION
  Report Type: Spontaneous
  Country: JP (occurrence: JP)
  Receive Date: 20200206
  Receipt Date: 20200804
  Transmission Date: 20201102
  Serious: Yes (Death, Other)
  Sender: FDA-Public Use
  Company Number: JP-ELI_LILLY_AND_COMPANY-JP202002000611

PATIENT
  Age: 55 Year
  Sex: Male
  Weight: 65 kg

DRUGS (5)
  1. CYRAMZA [Suspect]
     Active Substance: RAMUCIRUMAB
     Indication: LUNG ADENOCARCINOMA STAGE III
     Dosage: 10 MG/KG, CYCLICAL
     Route: 041
     Dates: start: 20181225, end: 20190226
  2. G LASTA [Suspect]
     Active Substance: PEGFILGRASTIM
     Indication: PROPHYLAXIS
     Dosage: 3.6 MG
     Route: 058
     Dates: start: 20181226, end: 20190228
  3. NARURAPID [Suspect]
     Active Substance: HYDROMORPHONE HYDROCHLORIDE
     Indication: BACK PAIN
     Dosage: 1 MG, PRN
     Route: 065
     Dates: start: 20190207
  4. DOCETAXEL. [Suspect]
     Active Substance: DOCETAXEL
     Indication: LUNG ADENOCARCINOMA STAGE III
     Dosage: 60 MG/M2, CYCLICAL
     Route: 041
     Dates: start: 20181225, end: 20190226
  5. NARUSUS [Suspect]
     Active Substance: HYDROMORPHONE HYDROCHLORIDE
     Indication: BACK PAIN
     Dosage: 2 MG, EACH MORNING
     Route: 065
     Dates: start: 20190207

REACTIONS (6)
  - Myalgia [Unknown]
  - Back pain [Unknown]
  - Pulmonary congestion [Unknown]
  - Sudden death [Fatal]
  - Pneumonia [Fatal]
  - Bone pain [Unknown]

NARRATIVE: CASE EVENT DATE: 2019
